FAERS Safety Report 4971020-3 (Version None)
Quarter: 2006Q2

REPORT INFORMATION
  Report Type: 
  Country: None (occurrence: None)
  Receive Date: 20060411
  Receipt Date: 20060411
  Transmission Date: 20061013
  Serious: Yes (Death, Hospitalization)
  Sender: FDA-Public Use
  Company Number: None

PATIENT
  Sex: Male
  Weight: 60.3284 kg

DRUGS (1)
  1. TEMOZOLOMIDE SCHERING-PLOUGH [Suspect]
     Indication: NON-SMALL CELL LUNG CANCER
     Dosage: 180 MG DAILY FOR 21 DAYS PO
     Route: 048
     Dates: start: 20060308, end: 20060329

REACTIONS (7)
  - CARDIO-RESPIRATORY ARREST [None]
  - CONVULSION [None]
  - ELECTROMECHANICAL DISSOCIATION [None]
  - FEELING ABNORMAL [None]
  - GENERAL PHYSICAL HEALTH DETERIORATION [None]
  - HYPOGLYCAEMIA [None]
  - LOSS OF CONSCIOUSNESS [None]
